FAERS Safety Report 21764893 (Version 1)
Quarter: 2022Q4

REPORT INFORMATION
  Report Type: Spontaneous
  Country: US (occurrence: None)
  Receive Date: 20221220
  Receipt Date: 20221220
  Transmission Date: 20230112
  Serious: No
  Sender: FDA-Public Use
  Company Number: None

PATIENT
  Sex: Female

DRUGS (2)
  1. TREPROSTINIL [Suspect]
     Active Substance: TREPROSTINIL
     Dosage: OTHER QUANTITY : 50 NG/KG/MIN?OTHER FREQUENCY : CONTINUOUS?
     Route: 042
     Dates: start: 20200319
  2. DEVICE [Suspect]
     Active Substance: DEVICE
     Indication: Pulmonary arterial hypertension
     Dates: start: 20200319

REACTIONS (8)
  - Recalled product administered [None]
  - Feeling abnormal [None]
  - Nausea [None]
  - Diarrhoea [None]
  - Vomiting [None]
  - Headache [None]
  - Peripheral swelling [None]
  - Dyspnoea [None]
